FAERS Safety Report 21625499 (Version 3)
Quarter: 2022Q4

REPORT INFORMATION
  Report Type: Spontaneous
  Country: US (occurrence: US)
  Receive Date: 20221122
  Receipt Date: 20221222
  Transmission Date: 20230112
  Serious: No
  Sender: FDA-Public Use
  Company Number: US-002147023-NVSC2022US262009

PATIENT
  Age: 25 Year
  Sex: Female
  Weight: 124.7 kg

DRUGS (3)
  1. ILARIS [Suspect]
     Active Substance: CANAKINUMAB
     Indication: Cryopyrin associated periodic syndrome
     Dosage: UNK, EVERY 4 WEEKS
     Route: 058
     Dates: start: 20221114
  2. HYDROXYCHLOROQUINE [Concomitant]
     Active Substance: HYDROXYCHLOROQUINE
     Indication: Arthralgia
     Dosage: 1 DOSAGE FORM, BID
     Route: 048
  3. HYDROXYCHLOROQUINE [Concomitant]
     Active Substance: HYDROXYCHLOROQUINE
     Indication: Malaria

REACTIONS (1)
  - Parosmia [Recovering/Resolving]

NARRATIVE: CASE EVENT DATE: 20221117
